FAERS Safety Report 5634228-X (Version None)
Quarter: 2008Q1

REPORT INFORMATION
  Report Type: 
  Country: None (occurrence: None)
  Receive Date: 20080220
  Receipt Date: 20080220
  Transmission Date: 20080703
  Serious: No
  Sender: FDA-Public Use
  Company Number: None

PATIENT
  Age: 63 Year
  Sex: Male
  Weight: 86.637 kg

DRUGS (3)
  1. LUPRON DEPOT [Suspect]
     Indication: PROSTATE CANCER
     Dosage: INTRAMUSCULAR; 30.0
     Route: 030
     Dates: start: 20050304, end: 20071219
  2. LUPRON DEPOT [Suspect]
  3. LUPRON DEPOT [Suspect]

REACTIONS (1)
  - INJECTION SITE HAEMATOMA [None]
